FAERS Safety Report 10469162 (Version 1)
Quarter: 2014Q3

REPORT INFORMATION
  Report Type: Spontaneous
  Country: US (occurrence: None)
  Receive Date: 20140829
  Receipt Date: 20140829
  Transmission Date: 20150326
  Serious: Yes (Hospitalization, Other)
  Sender: FDA-Public Use
  Company Number: PHEH2014US008784

PATIENT
  Age: 50 Year
  Sex: Male

DRUGS (2)
  1. EXFORGE [Suspect]
     Active Substance: AMLODIPINE BESYLATE\VALSARTAN
     Indication: HYPERTENSION
     Dosage: 1 DF  (160 MG VALS/ 10 MG AMLO), UNK
     Dates: start: 201212
  2. ATENOLOL (ATENOLOL) [Concomitant]
     Active Substance: ATENOLOL

REACTIONS (9)
  - Mental disorder [None]
  - Heart rate irregular [None]
  - Drug tolerance [None]
  - Cardiac disorder [None]
  - Hypotension [None]
  - Nervous system disorder [None]
  - Hypertension [None]
  - Heart rate decreased [None]
  - Feeling abnormal [None]
